FAERS Safety Report 11005363 (Version 1)
Quarter: 2015Q2

REPORT INFORMATION
  Report Type: Spontaneous
  Country: US (occurrence: US)
  Receive Date: 20150409
  Receipt Date: 20150409
  Transmission Date: 20150821
  Serious: No
  Sender: FDA-Public Use
  Company Number: US-009507513-1503USA009464

PATIENT
  Sex: Male

DRUGS (2)
  1. PRINIVIL [Suspect]
     Active Substance: LISINOPRIL
     Dosage: UNK
     Route: 048
     Dates: end: 20141125
  2. PRINIVIL [Suspect]
     Active Substance: LISINOPRIL
     Dosage: 1 TABLET, DAILY
     Route: 048
     Dates: start: 20141126

REACTIONS (2)
  - Blood creatinine increased [Unknown]
  - Dizziness [Unknown]

NARRATIVE: CASE EVENT DATE: 2014
